FAERS Safety Report 10061416 (Version 1)
Quarter: 2014Q2

REPORT INFORMATION
  Report Type: Spontaneous
  Country: US (occurrence: US)
  Receive Date: 20140407
  Receipt Date: 20140407
  Transmission Date: 20141212
  Serious: Yes (Hospitalization)
  Sender: FDA-Public Use
  Company Number: US-BAYER-2014-049557

PATIENT
  Age: 28 Year
  Sex: Female

DRUGS (2)
  1. YAZ [Suspect]
  2. MELOXICAM [Concomitant]
     Dosage: 7.5 MG, UNK
     Dates: start: 20100927

REACTIONS (1)
  - Pulmonary embolism [None]
